FAERS Safety Report 5950633-6 (Version None)
Quarter: 2008Q4

REPORT INFORMATION
  Report Type: 
  Country: None (occurrence: None)
  Receive Date: 20081112
  Receipt Date: 20081106
  Transmission Date: 20090506
  Serious: Yes (Other)
  Sender: FDA-Public Use
  Company Number: CA-ASTRAZENECA-2008UW25095

PATIENT
  Age: 61 Year
  Sex: Female
  Weight: 66.7 kg

DRUGS (6)
  1. CRESTOR [Suspect]
     Indication: BLOOD CHOLESTEROL INCREASED
     Route: 048
     Dates: start: 20080601, end: 20081001
  2. MULTI-VITAMINS [Concomitant]
  3. VITAMIN D [Concomitant]
  4. VITAMIN E [Concomitant]
  5. COENZYME Q10 [Concomitant]
  6. ALTACE [Concomitant]
     Indication: HYPERTENSION
     Dates: start: 20030101

REACTIONS (9)
  - ACTIVITIES OF DAILY LIVING IMPAIRED [None]
  - ALANINE AMINOTRANSFERASE INCREASED [None]
  - ARTHRALGIA [None]
  - BLOOD CREATINE PHOSPHOKINASE INCREASED [None]
  - DYSPNOEA [None]
  - MYALGIA [None]
  - PROTEIN TOTAL INCREASED [None]
  - SLEEP DISORDER [None]
  - SUICIDAL IDEATION [None]
